FAERS Safety Report 15290095 (Version 1)
Quarter: 2018Q3

REPORT INFORMATION
  Report Type: Spontaneous
  Country: JP (occurrence: JP)
  Receive Date: 20180817
  Receipt Date: 20180817
  Transmission Date: 20181010
  Serious: No
  Sender: FDA-Public Use
  Company Number: JP-PFIZER INC-2018326355

PATIENT
  Age: 60 Year
  Sex: Male

DRUGS (1)
  1. XALKORI [Suspect]
     Active Substance: CRIZOTINIB
     Indication: LUNG NEOPLASM MALIGNANT
     Dosage: 500 MG, DAILY
     Route: 048
     Dates: start: 20180720

REACTIONS (2)
  - Visual impairment [Unknown]
  - Visual field defect [Unknown]

NARRATIVE: CASE EVENT DATE: 20180725
